FAERS Safety Report 9937108 (Version 2)
Quarter: 2014Q1

REPORT INFORMATION
  Report Type: Report from Study
  Country: CO (occurrence: CO)
  Receive Date: 20140301
  Receipt Date: 20140301
  Transmission Date: 20141002
  Serious: Yes (Other)
  Sender: FDA-Public Use
  Company Number: CO-ROCHE-1338022

PATIENT
  Sex: Male
  Weight: 86.08 kg

DRUGS (1)
  1. RANIBIZUMAB [Suspect]
     Indication: GLAUCOMA
     Dosage: IN LEFT EYE
     Route: 050

REACTIONS (1)
  - Cataract [Not Recovered/Not Resolved]
